FAERS Safety Report 5045307-2 (Version None)
Quarter: 2006Q3

REPORT INFORMATION
  Report Type: 
  Country: None (occurrence: None)
  Receive Date: 20060707
  Receipt Date: 20060701
  Transmission Date: 20061208
  Serious: Yes (Hospitalization)
  Sender: FDA-Public Use
  Company Number: US-MERCK-0607USA00084

PATIENT
  Age: 89 Year
  Sex: Female

DRUGS (1)
  1. VYTORIN [Suspect]
     Route: 048
     Dates: start: 20050101

REACTIONS (5)
  - DIARRHOEA [None]
  - FLANK PAIN [None]
  - GALLBLADDER DISORDER [None]
  - INFLUENZA [None]
  - MYOCARDIAL INFARCTION [None]
